FAERS Safety Report 7476866-8 (Version None)
Quarter: 2011Q2

REPORT INFORMATION
  Report Type: 
  Country: None (occurrence: None)
  Receive Date: 20110512
  Receipt Date: 20091122
  Transmission Date: 20111010
  Serious: Yes (Death, Other)
  Sender: FDA-Public Use
  Company Number: US-BAYER-200940345NA

PATIENT
  Age: 73 Year
  Sex: Male
  Weight: 65.76 kg

DRUGS (21)
  1. AMICAR [Concomitant]
     Indication: CORONARY ARTERY BYPASS
  2. RED BLOOD CELLS [Concomitant]
     Dosage: UNK
     Dates: start: 20020819
  3. PLASMA [Concomitant]
     Dosage: UNK
     Dates: start: 20020819
  4. NORVASC [Concomitant]
     Dosage: 5MG EVERY 12 HOURS
     Route: 048
     Dates: start: 20020814
  5. PLATELETS [Concomitant]
     Dosage: UNK
     Dates: start: 20020819
  6. AMICAR [Concomitant]
     Indication: AORTIC VALVE REPAIR
     Dosage: UNK
     Dates: start: 20020819
  7. CLONIDINE [Concomitant]
     Indication: HYPERTENSION
     Dosage: .3MG THREE TIMES A DAY
     Route: 048
  8. FUROSEMIDE [Concomitant]
     Indication: HYPERTENSION
  9. SIMVASTATIN [Concomitant]
     Indication: HYPERCHOLESTEROLAEMIA
  10. NORVASC [Concomitant]
  11. THROMBIN LOCAL SOLUTION [Concomitant]
     Dosage: 20000 U, UNK
     Route: 061
  12. TRASYLOL [Suspect]
     Indication: CORONARY ARTERY BYPASS
  13. TRASYLOL [Suspect]
     Indication: AORTIC VALVE REPAIR
     Route: 042
     Dates: start: 20020829
  14. LABETALOL [Concomitant]
     Dosage: 10MG EVERY 3 HOURS AS NEEDED
     Route: 042
     Dates: start: 20020812
  15. COREG [Concomitant]
  16. HEPARIN [Concomitant]
     Dosage: 500 U, UNK
  17. ACETYLSALICYLIC ACID SRT [Concomitant]
  18. NORVASC [Concomitant]
     Dosage: 10MG EVERY 12 HOURS
     Route: 048
     Dates: start: 20020814
  19. NITROGLYCERIN [Concomitant]
     Dosage: UNK
     Dates: start: 20020819
  20. LABETALOL [Concomitant]
     Dosage: 200 MG EVERY 12 HOURS
     Route: 048
  21. LABETALOL [Concomitant]
     Dosage: 10 MG EVERY 2-4 HOURS AS NEEDED
     Route: 042
     Dates: start: 20020812

REACTIONS (13)
  - EMOTIONAL DISTRESS [None]
  - FEAR [None]
  - DEATH [None]
  - INJURY [None]
  - MULTI-ORGAN FAILURE [None]
  - PAIN [None]
  - RENAL FAILURE [None]
  - UNEVALUABLE EVENT [None]
  - ANHEDONIA [None]
  - RENAL IMPAIRMENT [None]
  - STRESS [None]
  - ANXIETY [None]
  - RENAL INJURY [None]
